FAERS Safety Report 5683108-2 (Version None)
Quarter: 2008Q1

REPORT INFORMATION
  Report Type: 
  Country: None (occurrence: None)
  Receive Date: 20080327
  Receipt Date: 20080318
  Transmission Date: 20080703
  Serious: Yes (Hospitalization)
  Sender: FDA-Public Use
  Company Number: FR-WYE-H03311808

PATIENT
  Sex: Male

DRUGS (6)
  1. CORDARONE [Suspect]
     Indication: VENTRICULAR ARRHYTHMIA
     Route: 048
     Dates: start: 20080207, end: 20080209
  2. CORDARONE [Suspect]
     Dosage: NOT PROVIDED
     Route: 048
     Dates: start: 20080212
  3. CARDENSIEL [Concomitant]
     Indication: VENTRICULAR ARRHYTHMIA
     Dosage: NOT PROVIDED
     Route: 048
  4. PREVISCAN [Suspect]
     Route: 048
     Dates: end: 20080209
  5. CORGARD [Suspect]
     Indication: VENTRICULAR ARRHYTHMIA
     Route: 048
     Dates: start: 20080125, end: 20080209
  6. TAHOR [Suspect]
     Route: 048
     Dates: end: 20080209

REACTIONS (6)
  - BRADYCARDIA [None]
  - CARDIOGENIC SHOCK [None]
  - EPILEPSY [None]
  - HEPATIC FAILURE [None]
  - HYPERKALAEMIA [None]
  - RENAL FAILURE ACUTE [None]
